FAERS Safety Report 23920849 (Version 2)
Quarter: 2024Q3

REPORT INFORMATION
  Report Type: Spontaneous
  Country: US (occurrence: US)
  Receive Date: 20240530
  Receipt Date: 20240716
  Transmission Date: 20241017
  Serious: Yes (Hospitalization, Other)
  Sender: MARINUS PHARMACEUTICALS
  Company Number: US-MARINUS PHARMACEUTICALS, INC.-MAR2024000092

PATIENT

DRUGS (7)
  1. ZTALMY [Suspect]
     Active Substance: GANAXOLONE
     Indication: Seizure
     Dosage: 12 MILLILITER, TID, GTUBE
     Dates: start: 20230920
  2. AMINO ACIDS, SOURCE UNSPECIFIED [Concomitant]
     Active Substance: AMINO ACIDS, SOURCE UNSPECIFIED
     Indication: Product used for unknown indication
     Dosage: UNK
     Route: 065
     Dates: start: 20240419
  3. EPIDIOLEX [Concomitant]
     Active Substance: CANNABIDIOL
     Indication: Product used for unknown indication
     Dosage: 3.7 ML (370 MG TOTAL) BY MOUTH IN THE MORNING AND BEFORE BEDTIME
     Route: 048
     Dates: start: 20240313
  4. NEURONTIN [Concomitant]
     Active Substance: GABAPENTIN
     Indication: Product used for unknown indication
     Dosage: 300 MILLIGRAM, TID AT 9:00, 15:00 AND 21:30
     Dates: start: 20240313
  5. MYCOSTATIN [Concomitant]
     Active Substance: NYSTATIN
     Indication: Rash
     Dosage: 100000 UNIT/GM POWDER APPLY TOPICALLY IF NEEDED FOR RASH. APPLY WITH EVERY DIAPER CHANGE
     Route: 061
     Dates: start: 20240116
  6. SENOKOT [Concomitant]
     Active Substance: SENNOSIDES
     Indication: Constipation
     Dosage: 8.8 MG/5 ML VIA G-TUBE 1 TIME EACH DAY IF NEEDED. GIVE 5 ML VIA GT DAILY AT 19:30 PER G TUBE
     Dates: start: 20240212
  7. DESYREL [Concomitant]
     Active Substance: TRAZODONE HYDROCHLORIDE
     Indication: Product used for unknown indication
     Dosage: 50 MILLIGRAM, BID  VIA G- TUBE EVERY NIGHT
     Dates: start: 20240322

REACTIONS (4)
  - Pneumonia [Recovered/Resolved]
  - Haematemesis [Recovered/Resolved]
  - Melaena [Recovered/Resolved]
  - Vomiting [Unknown]

NARRATIVE: CASE EVENT DATE: 20240416
